FAERS Safety Report 13898359 (Version 1)
Quarter: 2017Q3

REPORT INFORMATION
  Report Type: Report from Study
  Country: None (occurrence: US)
  Receive Date: 20170824
  Receipt Date: 20170824
  Transmission Date: 20171127
  Serious: No
  Sender: FDA-Public Use
  Company Number: US-SWEDISH ORPHAN INTERNATIONAL AB-2016US0739

PATIENT
  Age: 40 Year
  Sex: Female

DRUGS (2)
  1. KINERET [Suspect]
     Active Substance: ANAKINRA
     Indication: RHEUMATOID ARTHRITIS
  2. KINERET [Suspect]
     Active Substance: ANAKINRA
     Indication: PERICARDITIS
     Route: 058
     Dates: start: 20160831, end: 20160912

REACTIONS (8)
  - Hypersensitivity [Unknown]
  - Injection site warmth [Unknown]
  - Erythema [Unknown]
  - Influenza like illness [Unknown]
  - Fatigue [Unknown]
  - Pruritus [Unknown]
  - Injection site reaction [Unknown]
  - Urticaria [Unknown]

NARRATIVE: CASE EVENT DATE: 2016
